FAERS Safety Report 10383075 (Version 1)
Quarter: 2014Q3

REPORT INFORMATION
  Report Type: Spontaneous
  Country: US (occurrence: US)
  Receive Date: 20140813
  Receipt Date: 20140813
  Transmission Date: 20150326
  Serious: No
  Sender: FDA-Public Use
  Company Number: US-SA-FABR-1003342

PATIENT
  Age: 43 Year
  Sex: Female
  Weight: 81.63 kg

DRUGS (8)
  1. FABRAZYME [Suspect]
     Active Substance: AGALSIDASE BETA
     Indication: FABRY^S DISEASE
     Dosage: 0.8 MG/KG, Q2W
     Route: 042
     Dates: start: 20120305
  2. DIPHENHYDRAMINE [Concomitant]
     Active Substance: DIPHENHYDRAMINE
     Indication: PREMEDICATION
     Dosage: UNK
     Route: 065
  3. ONDANSETRON [Concomitant]
     Active Substance: ONDANSETRON
     Indication: PRODUCT USED FOR UNKNOWN INDICATION
     Dosage: UNK
     Route: 065
  4. BLOOD PRESSURE MEDICATIONS [Concomitant]
     Active Substance: UNSPECIFIED INGREDIENT
     Indication: BLOOD PRESSURE INCREASED
     Dosage: UNK
     Route: 065
  5. PARACETAMOL [Concomitant]
     Active Substance: ACETAMINOPHEN
     Indication: PREMEDICATION
     Dosage: UNK
     Route: 065
  6. HYDROCORTISONE SODIUM SUCCINATE [Concomitant]
     Active Substance: HYDROCORTISONE SODIUM SUCCINATE
     Indication: PREMEDICATION
     Dosage: UNK
     Route: 065
  7. VITAMINS [Concomitant]
     Active Substance: VITAMINS
     Indication: PRODUCT USED FOR UNKNOWN INDICATION
     Dosage: UNK
     Route: 065
  8. HCTZ [Concomitant]
     Active Substance: HYDROCHLOROTHIAZIDE
     Indication: PRODUCT USED FOR UNKNOWN INDICATION
     Dosage: UNK
     Route: 065

REACTIONS (1)
  - Migraine [Unknown]
